FAERS Safety Report 12056016 (Version 1)
Quarter: 2016Q1

REPORT INFORMATION
  Report Type: Spontaneous
  Country: US (occurrence: US)
  Receive Date: 20160209
  Receipt Date: 20160209
  Transmission Date: 20160526
  Serious: No
  Sender: FDA-Public Use
  Company Number: US-FERRINGPH-2015FE01582

PATIENT
  Age: 31 Year
  Sex: Female

DRUGS (4)
  1. GANIRELIX [Concomitant]
     Active Substance: GANIRELIX
  2. FOLLISTIM [Concomitant]
     Active Substance: FOLLITROPIN
  3. NOVAREL [Suspect]
     Active Substance: CHORIOGONADOTROPIN ALFA
     Indication: OVULATION INDUCTION
     Dosage: 10000 UNITS, ONCE/SINGLE
     Route: 051
     Dates: start: 20150507
  4. MENOPUR [Concomitant]
     Active Substance: FOLLICLE STIMULATING HORMONE BETA POLYPEPTIDE\LUTROPIN ALFA

REACTIONS (1)
  - Drug ineffective [Not Recovered/Not Resolved]

NARRATIVE: CASE EVENT DATE: 20150507
